FAERS Safety Report 12419209 (Version 2)
Quarter: 2016Q2

REPORT INFORMATION
  Report Type: Spontaneous
  Country: US (occurrence: US)
  Receive Date: 20160531
  Receipt Date: 20160607
  Transmission Date: 20160815
  Serious: No
  Sender: FDA-Public Use
  Company Number: US-BAYER-2016-100560

PATIENT
  Age: 6 Year
  Sex: Female

DRUGS (2)
  1. MELATONIN [Concomitant]
     Active Substance: MELATONIN
     Dosage: UNK
  2. CLARITIN [Suspect]
     Active Substance: LORATADINE
     Indication: NASAL CONGESTION
     Dosage: 2 DF, ONCE
     Dates: start: 20160524, end: 20160524

REACTIONS (2)
  - Product use issue [None]
  - Accidental exposure to product by child [None]

NARRATIVE: CASE EVENT DATE: 20160524
